FAERS Safety Report 8444204-X (Version None)
Quarter: 2012Q2

REPORT INFORMATION
  Report Type: 
  Country: None (occurrence: None)
  Receive Date: 20120618
  Receipt Date: 20120530
  Transmission Date: 20120825
  Serious: Yes (Death)
  Sender: FDA-Public Use
  Company Number: TN-SANOFI-AVENTIS-2012SA038831

PATIENT
  Age: 80 Year
  Sex: Female

DRUGS (7)
  1. PERINDOPRIL ERBUMINE [Concomitant]
     Route: 048
     Dates: end: 20120514
  2. PLAVIX [Suspect]
     Route: 048
     Dates: start: 20120130, end: 20120514
  3. ALLOPURINOL [Concomitant]
     Route: 048
     Dates: end: 20120514
  4. CORVASAL [Concomitant]
     Route: 048
     Dates: end: 20120514
  5. PLAVIX [Suspect]
     Indication: MYOCARDIAL INFARCTION
     Route: 048
     Dates: start: 20120130, end: 20120514
  6. ASPIRIN [Concomitant]
     Route: 048
     Dates: end: 20120514
  7. BISOPROLOL FUMARATE [Concomitant]
     Route: 048
     Dates: end: 20120514

REACTIONS (1)
  - CARDIAC FAILURE [None]
